FAERS Safety Report 7610505-8 (Version None)
Quarter: 2011Q3

REPORT INFORMATION
  Report Type: 
  Country: None (occurrence: None)
  Receive Date: 20110707
  Receipt Date: 20110622
  Transmission Date: 20111222
  Serious: Yes (Disabling)
  Sender: FDA-Public Use
  Company Number: JP-2011-11004

PATIENT
  Age: 85 Year
  Sex: Female
  Weight: 35 kg

DRUGS (15)
  1. SEISHOKU (ISOTONIC SODIUM CHLORIDE SOLUTION) INJECTION [Concomitant]
  2. ZANTAC (RANITIDINE HYDROCHLORIDE) TABLET [Concomitant]
  3. WARFARIN (WARFARIN POTASSIUM) TABLET [Concomitant]
  4. HANP (CARPERITIDE(GENETICAL RECOMBINATION)) INJECTION [Concomitant]
  5. GLUCOSE (GLUCOSE) INJECTION [Concomitant]
  6. ASPIRIN [Concomitant]
  7. ARICEPT D (DONEPEZIL HYDROCHLORIDE) TABLET [Concomitant]
  8. SAMSCA [Suspect]
     Indication: CARDIAC FAILURE
     Dosage: 15 MG MILLIGRAM(S), QD, ORAL,
     Route: 048
     Dates: start: 20110619, end: 20110619
  9. CALBLOCK (AZELNIDIPINE) TABLET [Concomitant]
  10. ENALAPRIL MALEATE [Concomitant]
  11. NORVASC [Concomitant]
  12. LASIX [Suspect]
     Indication: DIURETIC THERAPY
     Dosage: SEE IMAGE
     Route: 041
     Dates: start: 20110611, end: 20110617
  13. LASIX [Suspect]
     Indication: DIURETIC THERAPY
     Dosage: SEE IMAGE
     Route: 041
     Dates: start: 20110618, end: 20110618
  14. LASIX [Suspect]
     Indication: DIURETIC THERAPY
     Dosage: SEE IMAGE
     Route: 041
     Dates: start: 20110619
  15. NAUZELIN (DOMPERIDONE) TABLET [Concomitant]

REACTIONS (8)
  - HYPERNATRAEMIA [None]
  - ALTERED STATE OF CONSCIOUSNESS [None]
  - PO2 DECREASED [None]
  - RESPIRATORY DISORDER [None]
  - BLOOD PH INCREASED [None]
  - PO2 INCREASED [None]
  - PCO2 INCREASED [None]
  - BLOOD BICARBONATE INCREASED [None]
